FAERS Safety Report 4767421-9 (Version None)
Quarter: 2005Q3

REPORT INFORMATION
  Report Type: 
  Country: None (occurrence: None)
  Receive Date: 20050913
  Receipt Date: 20050905
  Transmission Date: 20060218
  Serious: Yes (Life-Threatening)
  Sender: FDA-Public Use
  Company Number: JP-MERCK-0509USA00866

PATIENT
  Age: 55 Year
  Sex: Male

DRUGS (7)
  1. CARNACULIN [Concomitant]
     Route: 048
  2. DASEN [Concomitant]
     Route: 048
  3. CYANOCOBALAMIN [Concomitant]
     Route: 048
  4. COZAAR [Suspect]
     Route: 048
     Dates: start: 20030101
  5. NITRENDIPINE [Concomitant]
     Route: 048
  6. URSODIOL [Concomitant]
     Route: 048
  7. SELBEX [Concomitant]
     Route: 048

REACTIONS (1)
  - DEPRESSED LEVEL OF CONSCIOUSNESS [None]
